FAERS Safety Report 18424321 (Version 2)
Quarter: 2020Q4

REPORT INFORMATION
  Report Type: Report from Study
  Country: US (occurrence: US)
  Receive Date: 20201025
  Receipt Date: 20201228
  Transmission Date: 20210114
  Serious: Yes (Hospitalization)
  Sender: FDA-Public Use
  Company Number: US-ROCHE-2622113

PATIENT
  Age: 67 Year
  Sex: Male

DRUGS (6)
  1. ATEZOLIZUMAB. [Suspect]
     Active Substance: ATEZOLIZUMAB
     Indication: PANCREATIC CARCINOMA
     Route: 041
     Dates: start: 20200715
  2. RO7198457 (RNA PERSONALISED CANCER VACCINE) [Suspect]
     Active Substance: RO-7198457
     Indication: PANCREATIC CARCINOMA
     Dosage: DATE OF LAST DOSE OF RO7198457 (RNA PERSONALISED CANCER VACCINE): 23/SEP/2020
     Route: 065
  3. IRINOTECAN [Suspect]
     Active Substance: IRINOTECAN
     Indication: PANCREATIC CARCINOMA
     Dosage: DATE OF LAST PROTOCOL TREATMENT/INTERVENTION PRIOR TO SAE: 27/MAY/2020?AT WEEK 21 AFTER TUMOR RESECT
     Route: 065
     Dates: start: 20200224
  4. LEUCOVORIN. [Suspect]
     Active Substance: LEUCOVORIN
     Indication: PANCREATIC CARCINOMA
     Dosage: DATE OF LAST PROTOCOL TREATMENT/INTERVENTION PRIOR TO SAE: 27/MAY/2020?AT WEEK 21 AFTER TUMOR RESECT
     Route: 065
     Dates: start: 20200224
  5. FLUOROURACIL. [Suspect]
     Active Substance: FLUOROURACIL
     Indication: PANCREATIC CARCINOMA
     Dosage: DATE OF LAST PROTOCOL TREATMENT/INTERVENTION PRIOR TO SAE: 27/MAY/2020?AT WEEK 21 AFTER TUMOR RESECT
     Route: 065
     Dates: start: 20200224
  6. OXALIPLATIN. [Suspect]
     Active Substance: OXALIPLATIN
     Indication: PANCREATIC CARCINOMA
     Dosage: DATE OF LAST PROTOCOL TREATMENT/INTERVENTION PRIOR TO SAE: 27/MAY/2020?AT WEEK 21 AFTER TUMOR RESECT
     Route: 065
     Dates: start: 20200224

REACTIONS (2)
  - Ventricular tachycardia [Unknown]
  - Ventricular tachycardia [Recovering/Resolving]

NARRATIVE: CASE EVENT DATE: 20200603
